FAERS Safety Report 9354600 (Version 3)
Quarter: 2013Q3

REPORT INFORMATION
  Report Type: Spontaneous
  Country: US (occurrence: US)
  Receive Date: 20130618
  Receipt Date: 20130813
  Transmission Date: 20140515
  Serious: No
  Sender: FDA-Public Use
  Company Number: US-009507513-1306USA006550

PATIENT
  Sex: 0

DRUGS (1)
  1. TICE BCG LIVE [Suspect]
     Route: 065

REACTIONS (1)
  - Multiple use of single-use product [Unknown]
